FAERS Safety Report 5676492-7 (Version None)
Quarter: 2008Q2

REPORT INFORMATION
  Report Type: 
  Country: None (occurrence: None)
  Receive Date: 20080310
  Receipt Date: 20070320
  Transmission Date: 20081010
  Serious: Yes (Other)
  Sender: FDA-Public Use
  Company Number: WWISSUE-69

PATIENT
  Sex: Female

DRUGS (6)
  1. FOLIC ACID [Suspect]
     Dosage: 1 PER DAY/ORAL
     Route: 048
     Dates: start: 20070306, end: 20070320
  2. SYNTHROID [Concomitant]
  3. TOPROL-XL [Concomitant]
  4. DIOVAN [Concomitant]
  5. VITAMINS CONTAINING 400MCG FOLIC ACID, [Concomitant]
  6. EQUATE MULTIPLE VITAMINS [Concomitant]

REACTIONS (2)
  - DIARRHOEA [None]
  - NAUSEA [None]
